FAERS Safety Report 21538198 (Version 3)
Quarter: 2023Q1

REPORT INFORMATION
  Report Type: Spontaneous
  Country: US (occurrence: US)
  Receive Date: 20221102
  Receipt Date: 20230104
  Transmission Date: 20230418
  Serious: No
  Sender: FDA-Public Use
  Company Number: US-GSK-US2022AMR154554

PATIENT
  Sex: Female
  Weight: 80.3 kg

DRUGS (1)
  1. BENLYSTA [Suspect]
     Active Substance: BELIMUMAB
     Indication: Product used for unknown indication
     Dosage: 200 MG, WE
     Route: 058
     Dates: start: 202102, end: 202209

REACTIONS (3)
  - Rash [Recovering/Resolving]
  - Synovitis [Recovering/Resolving]
  - Drug ineffective [Recovering/Resolving]
